FAERS Safety Report 6108048-6 (Version None)
Quarter: 2009Q1

REPORT INFORMATION
  Report Type: 
  Country: None (occurrence: None)
  Receive Date: 20090309
  Receipt Date: 20090223
  Transmission Date: 20090719
  Serious: Yes (Other)
  Sender: FDA-Public Use
  Company Number: US-ROCHE-552253

PATIENT
  Sex: Male
  Weight: 78.5 kg

DRUGS (7)
  1. ACCUTANE [Suspect]
     Indication: ACNE
     Route: 065
     Dates: start: 19981001, end: 19981201
  2. ACCUTANE [Suspect]
     Route: 065
     Dates: start: 19990101, end: 19990201
  3. ACCUTANE [Suspect]
     Route: 065
     Dates: start: 19990501, end: 19990601
  4. ACCUTANE [Suspect]
     Route: 065
     Dates: start: 20000201, end: 20000501
  5. ACCUTANE [Suspect]
     Route: 065
     Dates: start: 20010701, end: 20011001
  6. AMNESTEEM [Suspect]
     Indication: ACNE
     Route: 065
     Dates: start: 20030201, end: 20030301
  7. CLARAVIS [Suspect]
     Indication: ACNE
     Route: 065
     Dates: start: 20030701, end: 20030801

REACTIONS (6)
  - ANAL ABSCESS [None]
  - ANAL FISTULA [None]
  - COLITIS ULCERATIVE [None]
  - CROHN'S DISEASE [None]
  - INFLAMMATORY BOWEL DISEASE [None]
  - STRESS [None]
